FAERS Safety Report 4581938-1 (Version None)
Quarter: 2005Q1

REPORT INFORMATION
  Report Type: 
  Country: None (occurrence: None)
  Receive Date: 20050214
  Receipt Date: 20030603
  Transmission Date: 20050727
  Serious: No
  Sender: FDA-Public Use
  Company Number: US-GLAXOSMITHKLINE-A0513406A

PATIENT
  Age: 41 Year
  Sex: Female
  Weight: 75 kg

DRUGS (9)
  1. LAMICTAL [Suspect]
     Indication: DRUG USE FOR UNKNOWN INDICATION
     Route: 048
  2. WELLBUTRIN [Suspect]
     Indication: DRUG USE FOR UNKNOWN INDICATION
     Route: 048
  3. HERB DRUG [Suspect]
  4. ULTRAM [Suspect]
  5. FIORICET [Suspect]
  6. ALLEGRA [Concomitant]
  7. AMBIEN [Concomitant]
  8. SYNTHROID [Concomitant]
  9. MIDODRIN [Concomitant]

REACTIONS (5)
  - DIZZINESS [None]
  - FEELING ABNORMAL [None]
  - HEADACHE [None]
  - HUNGER [None]
  - NAUSEA [None]
